FAERS Safety Report 9589700 (Version 1)
Quarter: 2013Q4

REPORT INFORMATION
  Report Type: Spontaneous
  Country: US (occurrence: US)
  Receive Date: 20131003
  Receipt Date: 20131003
  Transmission Date: 20140711
  Serious: No
  Sender: FDA-Public Use
  Company Number: US-AMGEN-USASP2012071365

PATIENT
  Sex: Male

DRUGS (9)
  1. ENBREL [Suspect]
     Indication: ANKYLOSING SPONDYLITIS
     Dosage: 50 MG, QWK
     Route: 058
  2. FISH OIL [Concomitant]
     Dosage: UNK
  3. GLUCOSAMINE CHONDROITIN            /01430901/ [Concomitant]
     Dosage: UNK
  4. MULTIVITAMIN                       /00097801/ [Concomitant]
     Dosage: UNK
  5. FLAXSEED OIL [Concomitant]
     Dosage: UNK
  6. LYRICA [Concomitant]
     Dosage: 50 MG, UNK
  7. GINSENG                            /01384001/ [Concomitant]
     Dosage: 100 MG, UNK
  8. HOMATROPINE/ HYDROCODONE [Concomitant]
     Dosage: UNK
  9. CINNAMON                           /01647501/ [Concomitant]
     Dosage: 500 MG, UNK

REACTIONS (1)
  - Eye disorder [Unknown]
